FAERS Safety Report 4822784-0 (Version None)
Quarter: 2005Q4

REPORT INFORMATION
  Report Type: 
  Country: None (occurrence: None)
  Receive Date: 20051104
  Receipt Date: 20051027
  Transmission Date: 20060501
  Serious: Yes (Hospitalization)
  Sender: FDA-Public Use
  Company Number: 2004043894

PATIENT
  Age: 61 Year
  Sex: Male
  Weight: 85.7298 kg

DRUGS (5)
  1. ATORVASTATIN CALCIUM [Suspect]
     Indication: BLOOD CHOLESTEROL INCREASED
     Dosage: 20 MG (20 MG, 1 IN 1 D), ORAL
     Route: 048
     Dates: start: 20030402, end: 20051018
  2. VALSARTAN [Concomitant]
  3. CENTRUM (MINERAL NOS, VITAMIN NOS) [Concomitant]
  4. ASAPHEN (ACETYLSALICYLIC ACID) [Concomitant]
  5. LOZIDE (INDAPAMIDE HEMIHYDRATE) [Concomitant]

REACTIONS (8)
  - ARTHRALGIA [None]
  - DIVERTICULITIS INTESTINAL HAEMORRHAGIC [None]
  - FLATULENCE [None]
  - FUNGAL INFECTION [None]
  - GLOSSODYNIA [None]
  - LOSS OF CONSCIOUSNESS [None]
  - MENTAL DISORDER [None]
  - MUSCLE SPASMS [None]
